FAERS Safety Report 22659263 (Version 1)
Quarter: 2023Q2

REPORT INFORMATION
  Report Type: Spontaneous
  Country: JP (occurrence: JP)
  Receive Date: 20230630
  Receipt Date: 20230630
  Transmission Date: 20230721
  Serious: Yes (Hospitalization, Other)
  Sender: FDA-Public Use
  Company Number: JP-ONO-2023JP012739

PATIENT
  Age: 90 Year
  Sex: Female

DRUGS (2)
  1. RIVASTIGMINE [Suspect]
     Active Substance: RIVASTIGMINE
     Indication: Dementia Alzheimer^s type
     Dosage: UNK(INCLUDING POULTICE)
     Route: 062
  2. RIVASTIGMINE [Suspect]
     Active Substance: RIVASTIGMINE
     Dosage: 13.5 MG, QD (EVERYDAY,INCLUDING POULTICE)
     Route: 062

REACTIONS (4)
  - Renal failure [Unknown]
  - Dehydration [Unknown]
  - Skin disorder [Recovering/Resolving]
  - Application site dermatitis [Recovering/Resolving]
